FAERS Safety Report 6249879-1 (Version None)
Quarter: 2009Q2

REPORT INFORMATION
  Report Type: 
  Country: None (occurrence: None)
  Receive Date: 20090629
  Receipt Date: 20090619
  Transmission Date: 20091009
  Serious: Yes (Other)
  Sender: FDA-Public Use
  Company Number: BR-PFIZER INC-2009229695

PATIENT
  Age: 75 Year

DRUGS (8)
  1. LIPITOR [Suspect]
     Indication: BLOOD CHOLESTEROL INCREASED
     Dosage: UNK
  2. SELOKEN [Concomitant]
     Dosage: UNK
  3. NATRILIX SR [Concomitant]
     Dosage: UNK
  4. ARADOIS [Concomitant]
     Dosage: UNK
  5. PLAKETAR [Concomitant]
     Dosage: UNK
  6. METFORMIN [Concomitant]
     Dosage: 850 MG, 2X/DAY
  7. OMEPRAZOLE [Concomitant]
     Dosage: UNK
  8. MACRODANTINA [Concomitant]
     Dosage: UNK

REACTIONS (4)
  - AORTIC VALVE REPLACEMENT [None]
  - CARDIAC OPERATION [None]
  - CHOLELITHIASIS [None]
  - MYALGIA [None]
